FAERS Safety Report 6338162-1 (Version None)
Quarter: 2009Q3

REPORT INFORMATION
  Report Type: 
  Country: None (occurrence: None)
  Receive Date: 20090902
  Receipt Date: 20090901
  Transmission Date: 20100115
  Serious: Yes (Other)
  Sender: FDA-Public Use
  Company Number: US-PURDUE-USA-2009-0039114

PATIENT
  Sex: Male
  Weight: 92.517 kg

DRUGS (1)
  1. RYZOLT [Suspect]
     Indication: DRUG USE FOR UNKNOWN INDICATION
     Dosage: 100 MG, UNK

REACTIONS (4)
  - AGITATION [None]
  - ANGER [None]
  - ENERGY INCREASED [None]
  - PALPITATIONS [None]
